FAERS Safety Report 7077816-9 (Version None)
Quarter: 2010Q4

REPORT INFORMATION
  Report Type: 
  Country: None (occurrence: None)
  Receive Date: 20101101
  Receipt Date: 20101019
  Transmission Date: 20110411
  Serious: Yes (Other)
  Sender: FDA-Public Use
  Company Number: PHHY2010US70961

PATIENT
  Sex: Male
  Weight: 80.726 kg

DRUGS (1)
  1. ZOMETA [Suspect]
     Indication: PROSTATE CANCER
     Dosage: 3 MG, QMO
     Route: 042
     Dates: start: 20070831, end: 20100716

REACTIONS (4)
  - BONE DEBRIDEMENT [None]
  - DENTAL OPERATION [None]
  - OSTEONECROSIS [None]
  - POOR DENTAL CONDITION [None]
